FAERS Safety Report 10223523 (Version 2)
Quarter: 2014Q2

REPORT INFORMATION
  Report Type: Report from Study
  Country: US (occurrence: US)
  Receive Date: 20140609
  Receipt Date: 20140609
  Transmission Date: 20141212
  Serious: Yes (Hospitalization, Other)
  Sender: FDA-Public Use
  Company Number: US-BIOGENIDEC-2014BI004416

PATIENT
  Age: 35 Year
  Sex: Female
  Weight: 112 kg

DRUGS (14)
  1. AVONEX [Suspect]
     Indication: RELAPSING-REMITTING MULTIPLE SCLEROSIS
     Route: 030
     Dates: start: 20130405
  2. FLUOXETINE [Concomitant]
     Route: 048
     Dates: start: 20140509
  3. DEPO-PROVERA [Concomitant]
     Route: 030
  4. DILAUDID [Concomitant]
     Route: 048
  5. FOLIC ACID [Concomitant]
     Route: 048
  6. GABAPENTIN [Concomitant]
     Indication: PAIN
     Route: 048
  7. NORCO [Concomitant]
     Indication: PAIN
     Route: 048
  8. OMEPRAZOLE [Concomitant]
     Route: 048
  9. TUMS [Concomitant]
     Route: 048
  10. VITAMIN B COMPLEX [Concomitant]
     Route: 048
  11. VITAMIN D3 [Concomitant]
     Route: 048
  12. XANAX [Concomitant]
     Indication: SLEEP DISORDER
     Route: 048
  13. XANAX [Concomitant]
     Indication: ANXIETY
     Route: 048
  14. LEVOTHYROXINE [Concomitant]
     Route: 048

REACTIONS (8)
  - Thrombosis [Unknown]
  - Frustration [Unknown]
  - Depression [Unknown]
  - Influenza like illness [Recovered/Resolved]
  - Immune thrombocytopenic purpura [Not Recovered/Not Resolved]
  - Increased tendency to bruise [Not Recovered/Not Resolved]
  - Thyroid disorder [Not Recovered/Not Resolved]
  - Fatigue [Not Recovered/Not Resolved]
